FAERS Safety Report 23352680 (Version 1)
Quarter: 2023Q4

REPORT INFORMATION
  Report Type: Report from Study
  Country: MX (occurrence: MX)
  Receive Date: 20231230
  Receipt Date: 20231230
  Transmission Date: 20240109
  Serious: Yes (Other)
  Sender: FDA-Public Use
  Company Number: MX-UCBSA-2023061522

PATIENT

DRUGS (4)
  1. CERTOLIZUMAB PEGOL [Suspect]
     Active Substance: CERTOLIZUMAB PEGOL
     Indication: Rheumatoid arthritis
     Dosage: 400 MILLIGRAM, EV 2 WEEKS(QOW)
     Route: 064
     Dates: start: 20231019, end: 20231109
  2. CERTOLIZUMAB PEGOL [Suspect]
     Active Substance: CERTOLIZUMAB PEGOL
     Indication: Sjogren^s syndrome
  3. FOLIC ACID [Concomitant]
     Active Substance: FOLIC ACID
     Indication: Pregnancy
     Dosage: UNK
  4. VITAMINS NOS [Concomitant]
     Active Substance: VITAMINS
     Indication: Pregnancy
     Dosage: UNK

REACTIONS (2)
  - Foetal growth restriction [Unknown]
  - Maternal exposure during pregnancy [Unknown]

NARRATIVE: CASE EVENT DATE: 20231019
